FAERS Safety Report 4539880-8 (Version None)
Quarter: 2004Q4

REPORT INFORMATION
  Report Type: 
  Country: None (occurrence: None)
  Receive Date: 20041223
  Receipt Date: 20041215
  Transmission Date: 20050328
  Serious: Yes (Other)
  Sender: FDA-Public Use
  Company Number: 2004111091

PATIENT
  Age: 10 Year
  Sex: Female
  Weight: 28 kg

DRUGS (6)
  1. VORICONAZOLE (VORICONAZOLE) [Suspect]
     Indication: ASPERGILLOSIS
     Dosage: 12 MG/KG (12 MG/KG, 1 IN 1 D), INTRAVENOUS
     Route: 042
     Dates: start: 20041029
  2. AMPHOTERICIN B [Concomitant]
  3. VANCOMYCIN [Concomitant]
  4. MEROPENEM (MEROPENEM) [Concomitant]
  5. AMIKACIN [Concomitant]
  6. BACTRIM [Concomitant]

REACTIONS (1)
  - CHROMATOPSIA [None]
